FAERS Safety Report 4869136-5 (Version None)
Quarter: 2005Q4

REPORT INFORMATION
  Report Type: 
  Country: None (occurrence: None)
  Receive Date: 20051228
  Receipt Date: 20051228
  Transmission Date: 20060501
  Serious: Yes (Death)
  Sender: FDA-Public Use
  Company Number: None

PATIENT
  Age: 17 Year
  Sex: Female
  Weight: 74.3899 kg

DRUGS (3)
  1. ORTHO TRI-CYCLEN [Suspect]
     Indication: DYSMENORRHOEA
     Dosage: ONE A DAY
  2. IMITREX NS [Concomitant]
  3. BENZACLIN CREAM [Concomitant]

REACTIONS (2)
  - PELVIC VENOUS THROMBOSIS [None]
  - PULMONARY EMBOLISM [None]
